FAERS Safety Report 11547679 (Version 1)
Quarter: 2015Q3

REPORT INFORMATION
  Report Type: Spontaneous
  Country: BR (occurrence: BR)
  Receive Date: 20150924
  Receipt Date: 20150924
  Transmission Date: 20151125
  Serious: Yes (Other)
  Sender: FDA-Public Use
  Company Number: BR-VALIDUS PHARMACEUTICALS LLC-BR-2015VAL000579

PATIENT

DRUGS (1)
  1. PARLODEL [Suspect]
     Active Substance: BROMOCRIPTINE MESYLATE
     Indication: BODY TEMPERATURE INCREASED
     Dosage: 1.5 DF, UNK
     Route: 048

REACTIONS (3)
  - Drug administered to patient of inappropriate age [Unknown]
  - Off label use [Unknown]
  - Body temperature increased [Recovered/Resolved]
